FAERS Safety Report 11820916 (Version 1)
Quarter: 2015Q4

REPORT INFORMATION
  Report Type: Spontaneous
  Country: US (occurrence: US)
  Receive Date: 20151210
  Receipt Date: 20151210
  Transmission Date: 20160305
  Serious: No
  Sender: FDA-Public Use
  Company Number: US-JNJFOC-20150721199

PATIENT
  Age: 69 Year
  Sex: Female

DRUGS (13)
  1. SIMVASTATIN. [Concomitant]
     Active Substance: SIMVASTATIN
  2. AZELASTINE [Concomitant]
     Active Substance: AZELASTINE
  3. HYDROMORPHONE [Concomitant]
     Active Substance: HYDROMORPHONE
  4. OMEPRAZOLE. [Concomitant]
     Active Substance: OMEPRAZOLE
  5. IMBRUVICA [Suspect]
     Active Substance: IBRUTINIB
     Indication: LYMPHOMA
     Route: 048
     Dates: start: 2015
  6. GLIMEPIRIDE. [Concomitant]
     Active Substance: GLIMEPIRIDE
  7. RIZATRIPTAN. [Concomitant]
     Active Substance: RIZATRIPTAN
  8. NASONEX [Concomitant]
     Active Substance: MOMETASONE FUROATE
  9. IMBRUVICA [Suspect]
     Active Substance: IBRUTINIB
     Indication: LYMPHOMA
     Route: 048
     Dates: start: 20150216, end: 2015
  10. GABAPENTIN. [Concomitant]
     Active Substance: GABAPENTIN
  11. NUVIGIL [Concomitant]
     Active Substance: ARMODAFINIL
  12. METFORMIN [Concomitant]
     Active Substance: METFORMIN HYDROCHLORIDE
  13. OXYCODONE [Concomitant]
     Active Substance: OXYCODONE

REACTIONS (2)
  - Drug intolerance [Unknown]
  - Off label use [Unknown]

NARRATIVE: CASE EVENT DATE: 2015
